FAERS Safety Report 23530762 (Version 1)
Quarter: 2024Q1

REPORT INFORMATION
  Report Type: Spontaneous
  Country: CA (occurrence: CA)
  Receive Date: 20240216
  Receipt Date: 20240216
  Transmission Date: 20240409
  Serious: Yes (Other)
  Sender: FDA-Public Use
  Company Number: None

PATIENT
  Sex: Female

DRUGS (2)
  1. LETROZOLE [Suspect]
     Active Substance: LETROZOLE
     Indication: Product used for unknown indication
  2. CARBOCYSTEINE [Suspect]
     Active Substance: CARBOCYSTEINE
     Indication: Product used for unknown indication

REACTIONS (2)
  - Disease progression [Unknown]
  - Ovarian cancer [Unknown]
